FAERS Safety Report 19907520 (Version 2)
Quarter: 2021Q4

REPORT INFORMATION
  Report Type: Report from Study
  Country: US (occurrence: US)
  Receive Date: 20211001
  Receipt Date: 20211112
  Transmission Date: 20220303
  Serious: Yes (Other)
  Sender: FDA-Public Use
  Company Number: US-JNJFOC-20210944853

PATIENT
  Age: 20 Year
  Sex: Female

DRUGS (6)
  1. SPRAVATO [Suspect]
     Active Substance: ESKETAMINE
     Indication: Depression
     Dosage: 56 MG, 2 DOSES
     Dates: start: 20210916, end: 20210917
  2. SPRAVATO [Suspect]
     Active Substance: ESKETAMINE
     Dosage: 56 MG, 1 DOSE
     Dates: start: 20210920, end: 20210920
  3. SPRAVATO [Suspect]
     Active Substance: ESKETAMINE
     Dosage: 54 MG, 2 DOSES
  4. LAMICTAL [Concomitant]
     Active Substance: LAMOTRIGINE
  5. SAPHRIS [Concomitant]
     Active Substance: ASENAPINE MALEATE
  6. KLONOPIN [Concomitant]
     Active Substance: CLONAZEPAM

REACTIONS (3)
  - Intentional self-injury [Recovered/Resolved]
  - Sedation [Recovered/Resolved]
  - Dissociation [Recovered/Resolved]

NARRATIVE: CASE EVENT DATE: 20210920
